FAERS Safety Report 9027947 (Version 1)
Quarter: 2013Q1

REPORT INFORMATION
  Report Type: Spontaneous
  Country: US (occurrence: None)
  Receive Date: 20130114
  Receipt Date: 20130114
  Transmission Date: 20140127
  Serious: Yes (Other)
  Sender: FDA-Public Use
  Company Number: None

PATIENT
  Age: 24 Year
  Sex: Male

DRUGS (1)
  1. PEGASYS [Suspect]
     Indication: CHRONIC HEPATITIS B
     Dosage: 180MCG ONCE A WEEK SUBCUTANEOUSLY
     Route: 058
     Dates: start: 20120218

REACTIONS (4)
  - Amnesia [None]
  - Depression [None]
  - Fatigue [None]
  - Fall [None]
